FAERS Safety Report 5679392-1 (Version None)
Quarter: 2008Q1

REPORT INFORMATION
  Report Type: 
  Country: None (occurrence: None)
  Receive Date: 20080321
  Receipt Date: 20080317
  Transmission Date: 20080703
  Serious: Yes (Hospitalization, Disabling)
  Sender: FDA-Public Use
  Company Number: 056-C5013-07040733

PATIENT
  Age: 71 Year
  Sex: Male
  Weight: 70 kg

DRUGS (7)
  1. CC-5013 (LENALIDOMIDE) (CAPSULES) [Suspect]
     Indication: MYELODYSPLASTIC SYNDROME
     Dosage: 10 MG, 1 IN 1 D, ORAL
     Route: 048
     Dates: start: 20070323, end: 20070411
  2. ALDACTONE [Concomitant]
  3. LEVOTHYROXINE SODIUM [Concomitant]
  4. CORDARONE [Concomitant]
  5. DIGOXIN [Concomitant]
  6. INEXIUM (ESOMEPRAZOLE) [Concomitant]
  7. RITUXIMAB (RITUXIMAB) [Concomitant]

REACTIONS (18)
  - ACUTE PULMONARY OEDEMA [None]
  - ANAEMIA HAEMOLYTIC AUTOIMMUNE [None]
  - ATRIAL FIBRILLATION [None]
  - CARDIAC FAILURE [None]
  - CHEST X-RAY ABNORMAL [None]
  - CHLAMYDIAL INFECTION [None]
  - DILATATION VENTRICULAR [None]
  - HAEMOGLOBIN DECREASED [None]
  - HAEMORRHAGE [None]
  - ILL-DEFINED DISORDER [None]
  - LEFT ATRIAL DILATATION [None]
  - LUNG INFECTION [None]
  - MITRAL VALVE INCOMPETENCE [None]
  - PYREXIA [None]
  - RENAL FAILURE [None]
  - THROMBOCYTOPENIA [None]
  - TUBERCULOSIS [None]
  - WHITE BLOOD CELL COUNT DECREASED [None]
